FAERS Safety Report 11766452 (Version 1)
Quarter: 2015Q4

REPORT INFORMATION
  Report Type: Spontaneous
  Country: JP (occurrence: JP)
  Receive Date: 20151123
  Receipt Date: 20151123
  Transmission Date: 20160304
  Serious: Yes (Hospitalization)
  Sender: FDA-Public Use
  Company Number: JP-PFIZER INC-2015352395

PATIENT
  Age: 81 Year
  Sex: Female
  Weight: 37 kg

DRUGS (1)
  1. VFEND [Suspect]
     Active Substance: VORICONAZOLE
     Indication: SINUSITIS ASPERGILLUS
     Dosage: 150 MG, 2X/DAY
     Route: 048
     Dates: start: 20150830, end: 20150920

REACTIONS (2)
  - Brain abscess [Recovering/Resolving]
  - Hepatic function abnormal [Recovered/Resolved]

NARRATIVE: CASE EVENT DATE: 20150909
